FAERS Safety Report 8221839-0 (Version None)
Quarter: 2012Q1

REPORT INFORMATION
  Report Type: 
  Country: None (occurrence: None)
  Receive Date: 20120320
  Receipt Date: 20120319
  Transmission Date: 20120608
  Serious: Yes (Life-Threatening, Hospitalization, Other)
  Sender: FDA-Public Use
  Company Number: JP-B.I. PHARMACEUTICALS,INC./RIDGEFIELD-2011-BP-26018NB

PATIENT
  Age: 79 Year
  Sex: Male
  Weight: 62 kg

DRUGS (5)
  1. FRANDOL S [Concomitant]
     Route: 065
  2. PRADAXA [Suspect]
     Dosage: 220 MG
     Route: 048
     Dates: end: 20111001
  3. LOSARTAN POTASSIUM [Concomitant]
     Route: 065
  4. ADALAT CC [Concomitant]
     Route: 065
  5. LANTUS [Concomitant]
     Route: 065

REACTIONS (5)
  - HAEMOGLOBIN DECREASED [None]
  - DECREASED APPETITE [None]
  - GASTROINTESTINAL HAEMORRHAGE [None]
  - RED BLOOD CELL COUNT DECREASED [None]
  - DIZZINESS [None]
